FAERS Safety Report 15849216 (Version 1)
Quarter: 2019Q1

REPORT INFORMATION
  Report Type: Spontaneous
  Country: ES (occurrence: ES)
  Receive Date: 20190121
  Receipt Date: 20190121
  Transmission Date: 20190417
  Serious: Yes (Hospitalization)
  Sender: FDA-Public Use
  Company Number: ES-MYLANLABS-2019M1003828

PATIENT
  Age: 36 Year
  Sex: Male

DRUGS (4)
  1. AMOXICILLIN/CLAVULANIC ACID [Suspect]
     Active Substance: AMOXICILLIN\CLAVULANIC ACID
     Indication: TUBERCULOSIS
     Dosage: DEL 24 AL 28. REINTRODUCEN EL 4/12 Y SUSPENDEN POR AUMENTO DE TRANSAMINASAS
     Dates: start: 20171124, end: 20171128
  2. LINEZOLID. [Suspect]
     Active Substance: LINEZOLID
     Indication: TUBERCULOSIS
     Dosage: DEL 24 AL 28. REINTRODUCEN EL 11/12
     Route: 065
     Dates: start: 20171124, end: 20171128
  3. CLOFAZIMINA [Suspect]
     Active Substance: CLOFAZIMINE
     Indication: TUBERCULOSIS
     Dosage: DEL 24 AL 28. REINICIA EL 14/12
     Route: 065
     Dates: start: 20171124, end: 20171128
  4. MEROPENEM. [Suspect]
     Active Substance: MEROPENEM
     Indication: TUBERCULOSIS
     Dosage: DEL 24 AL 28. REINTRODUCEN EL 4/12 Y SUSPENDEN POR AUMENTO DE TRANSAMINASAS
     Route: 065
     Dates: start: 20171124, end: 20171128

REACTIONS (1)
  - Hepatitis cholestatic [Recovered/Resolved]

NARRATIVE: CASE EVENT DATE: 20171128
